FAERS Safety Report 5970240-9 (Version None)
Quarter: 2008Q4

REPORT INFORMATION
  Report Type: 
  Country: None (occurrence: None)
  Receive Date: 20081126
  Receipt Date: 20081118
  Transmission Date: 20090506
  Serious: Yes (Hospitalization)
  Sender: FDA-Public Use
  Company Number: FR-PFIZER INC-2008098226

PATIENT
  Age: 86 Year
  Sex: Female
  Weight: 45 kg

DRUGS (4)
  1. LYRICA [Suspect]
     Indication: NEURALGIA
  2. SOLUPRED [Concomitant]
  3. BONIVA [Concomitant]
  4. CELLCEPT [Concomitant]

REACTIONS (1)
  - LOCKED-IN SYNDROME [None]
